FAERS Safety Report 18567391 (Version 1)
Quarter: 2020Q4

REPORT INFORMATION
  Report Type: Spontaneous
  Country: CN (occurrence: CN)
  Receive Date: 20201201
  Receipt Date: 20201201
  Transmission Date: 20210114
  Serious: Yes (Hospitalization)
  Sender: FDA-Public Use
  Company Number: CN-BAXTER-2020BAX024061

PATIENT
  Age: 75 Year
  Sex: Male
  Weight: 77.6 kg

DRUGS (7)
  1. LIPITOR [Suspect]
     Active Substance: ATORVASTATIN CALCIUM
     Indication: PRODUCT USED FOR UNKNOWN INDICATION
     Route: 048
     Dates: start: 20201106
  2. CLOPIDOGREL [Suspect]
     Active Substance: CLOPIDOGREL BISULFATE
     Indication: PRODUCT USED FOR UNKNOWN INDICATION
     Route: 048
     Dates: start: 20201106
  3. DEPAKINE [Suspect]
     Active Substance: VALPROATE SODIUM
     Indication: CEREBRAL INFARCTION
     Dosage: 1 TABLET; SUSTAINED-RELEASE TABLETS
     Route: 048
     Dates: start: 20201106, end: 20201119
  4. DEPAKINE [Suspect]
     Active Substance: VALPROATE SODIUM
     Indication: DISEASE COMPLICATION
  5. GABAPENTIN. [Suspect]
     Active Substance: GABAPENTIN
     Indication: PRODUCT USED FOR UNKNOWN INDICATION
     Route: 048
     Dates: start: 20201110
  6. 20% MANNITOL INJECTION [Suspect]
     Active Substance: MANNITOL
     Indication: INTERVERTEBRAL DISC PROTRUSION
     Dosage: 100ML : 20 G- 2BAGS
     Route: 041
     Dates: start: 20201111, end: 20201112
  7. ADALAT [Suspect]
     Active Substance: NIFEDIPINE
     Indication: HYPERTENSION
     Dosage: 1 TABLET; CONTROLLED RELEASE TABLETS
     Route: 048
     Dates: start: 20201105, end: 20201119

REACTIONS (1)
  - Rash pruritic [Recovered/Resolved]

NARRATIVE: CASE EVENT DATE: 20201112
